FAERS Safety Report 9319359 (Version 1)
Quarter: 2013Q2

REPORT INFORMATION
  Report Type: Spontaneous
  Country: US (occurrence: None)
  Receive Date: 20130529
  Receipt Date: 20130529
  Transmission Date: 20140414
  Serious: Yes (Other)
  Sender: FDA-Public Use
  Company Number: None

PATIENT
  Age: 65 Year
  Sex: Female
  Weight: 93.44 kg

DRUGS (2)
  1. CYMBALTA [Suspect]
     Indication: FIBROMYALGIA
     Route: 048
     Dates: start: 201208, end: 201209
  2. CYMBALTA [Suspect]
     Indication: PAIN
     Route: 048
     Dates: start: 201208, end: 201209

REACTIONS (8)
  - Nausea [None]
  - Diarrhoea [None]
  - Dizziness [None]
  - Irritability [None]
  - Tachyphrenia [None]
  - Anxiety [None]
  - Fatigue [None]
  - Insomnia [None]
